FAERS Safety Report 20435445 (Version 3)
Quarter: 2022Q1

REPORT INFORMATION
  Report Type: Report from Study
  Country: CA (occurrence: CA)
  Receive Date: 20220206
  Receipt Date: 20220307
  Transmission Date: 20220424
  Serious: Yes (Other)
  Sender: FDA-Public Use
  Company Number: CA-ABBVIE-22K-028-4263913-00

PATIENT
  Sex: Female

DRUGS (1)
  1. HUMIRA [Suspect]
     Active Substance: ADALIMUMAB
     Indication: Crohn^s disease
     Route: 058

REACTIONS (5)
  - Fistula [Recovering/Resolving]
  - Uterine leiomyoma [Recovered/Resolved]
  - Weight increased [Unknown]
  - Abdominal distension [Unknown]
  - Muscle spasms [Recovering/Resolving]
